FAERS Safety Report 5868803-4 (Version None)
Quarter: 2008Q3

REPORT INFORMATION
  Report Type: 
  Country: None (occurrence: None)
  Receive Date: 20080902
  Receipt Date: 20080902
  Transmission Date: 20090109
  Serious: Yes (Life-Threatening, Hospitalization, Disabling)
  Sender: FDA-Public Use
  Company Number: None

PATIENT
  Age: 69 Year
  Sex: Female
  Weight: 63.5036 kg

DRUGS (2)
  1. HYDROCHLOROTHIAZIDE [Suspect]
     Indication: TRANSIENT ISCHAEMIC ATTACK
     Dosage: ONE 25 MG TABLET DAILY
     Dates: start: 20080712, end: 20080812
  2. LISINOPRIL [Concomitant]

REACTIONS (8)
  - ACTIVITIES OF DAILY LIVING IMPAIRED [None]
  - BLOOD PRESSURE DECREASED [None]
  - DYSSTASIA [None]
  - HYPERHIDROSIS [None]
  - MALAISE [None]
  - PALLOR [None]
  - PERIPHERAL COLDNESS [None]
  - SYNCOPE [None]
